FAERS Safety Report 7498480-0 (Version None)
Quarter: 2011Q2

REPORT INFORMATION
  Report Type: 
  Country: None (occurrence: None)
  Receive Date: 20110516
  Receipt Date: 20110510
  Transmission Date: 20111010
  Serious: Yes (Hospitalization)
  Sender: FDA-Public Use
  Company Number: 2011SP021246

PATIENT
  Age: 18 Year
  Sex: Female

DRUGS (2)
  1. IMPLANON [Suspect]
     Indication: PRODUCT USED FOR UNKNOWN INDICATION
     Dosage: 1 DF;
     Dates: start: 20100707, end: 20100828
  2. JULIET-35 ED (CON.) [Concomitant]

REACTIONS (4)
  - FASCIITIS [None]
  - COMPLEX REGIONAL PAIN SYNDROME [None]
  - IMPLANT SITE CELLULITIS [None]
  - PAIN [None]
